FAERS Safety Report 19456220 (Version 1)
Quarter: 2021Q2

REPORT INFORMATION
  Report Type: Spontaneous
  Country: US (occurrence: US)
  Receive Date: 20210624
  Receipt Date: 20210624
  Transmission Date: 20210717
  Serious: Yes (Disabling)
  Sender: FDA-Public Use
  Company Number: None

PATIENT
  Age: 77 Year
  Sex: Female

DRUGS (7)
  1. ASPIRIN 325 MG [Concomitant]
     Active Substance: ASPIRIN
  2. VITAMIN K [Concomitant]
     Active Substance: PHYTONADIONE
  3. VITAMIN D [Concomitant]
     Active Substance: VITAMIN D NOS
  4. CIPROFLOXACIN. [Suspect]
     Active Substance: CIPROFLOXACIN
     Indication: URINARY TRACT INFECTION
     Dosage: ?          QUANTITY:1 DF DOSAGE FORM;?
     Dates: start: 20190820, end: 20200102
  5. AMLODIPINE [Concomitant]
     Active Substance: AMLODIPINE BESYLATE
  6. ENALAPRIL [Concomitant]
     Active Substance: ENALAPRIL
  7. CALCIUM [Concomitant]
     Active Substance: CALCIUM

REACTIONS (1)
  - Tendonitis [None]

NARRATIVE: CASE EVENT DATE: 20200202
